FAERS Safety Report 4965861-6 (Version None)
Quarter: 2006Q2

REPORT INFORMATION
  Report Type: 
  Country: None (occurrence: None)
  Receive Date: 20060407
  Receipt Date: 20060327
  Transmission Date: 20061013
  Serious: Yes (Other)
  Sender: FDA-Public Use
  Company Number: JP-JNJFOC-20060201989

PATIENT
  Sex: Male

DRUGS (11)
  1. CRAVIT [Suspect]
     Route: 048
     Dates: start: 20051214, end: 20060104
  2. CRAVIT [Suspect]
     Indication: PULMONARY TUBERCULOSIS
     Route: 048
     Dates: start: 20051214, end: 20060104
  3. MARZULENE [Concomitant]
     Route: 048
     Dates: start: 20051221
  4. ISCOTIN [Concomitant]
     Route: 048
     Dates: start: 20051207, end: 20060104
  5. RIFADIN [Concomitant]
     Route: 048
     Dates: start: 20051207, end: 20060104
  6. METFORMIN HCL [Concomitant]
     Route: 048
     Dates: start: 20050801
  7. TINELAC [Concomitant]
     Route: 048
     Dates: start: 20050814
  8. PENFILL [Concomitant]
     Route: 058
     Dates: start: 20040803
  9. ROHYPNOL [Concomitant]
     Route: 048
     Dates: start: 20050809
  10. ADOFEED [Concomitant]
     Route: 062
  11. LAXOBERON [Concomitant]
     Route: 048
     Dates: start: 20051025

REACTIONS (1)
  - ANOSMIA [None]
